FAERS Safety Report 9791266 (Version 1)
Quarter: 2014Q1

REPORT INFORMATION
  Report Type: Spontaneous
  Country: US (occurrence: US)
  Receive Date: 20140101
  Receipt Date: 20140101
  Transmission Date: 20141002
  Serious: No
  Sender: FDA-Public Use
  Company Number: US-BIOGENIDEC-2013BI123614

PATIENT
  Sex: 0

DRUGS (4)
  1. TYSABRI [Suspect]
     Indication: PRODUCT USED FOR UNKNOWN INDICATION
     Route: 042
  2. AVONEX [Concomitant]
     Route: 030
  3. TECFIDERA [Concomitant]
  4. NALTREXONE [Concomitant]

REACTIONS (1)
  - Antibody test positive [Unknown]
